FAERS Safety Report 17251986 (Version 3)
Quarter: 2020Q1

REPORT INFORMATION
  Report Type: Spontaneous
  Country: US (occurrence: US)
  Receive Date: 20200109
  Receipt Date: 20200117
  Transmission Date: 20200409
  Serious: Yes (Hospitalization, Other)
  Sender: FDA-Public Use
  Company Number: US-PFIZER INC-2020000882

PATIENT
  Age: 31 Year
  Sex: Male

DRUGS (2)
  1. HYDROCORTISONE SODIUM SUCCINATE [Suspect]
     Active Substance: HYDROCORTISONE SODIUM SUCCINATE
     Indication: FOOD ALLERGY
     Dosage: UNK
     Route: 042
  2. METHYLPREDNISOLONE ACETATE. [Suspect]
     Active Substance: METHYLPREDNISOLONE ACETATE
     Indication: FOOD ALLERGY
     Dosage: UNK
     Route: 030

REACTIONS (2)
  - Therapeutic product cross-reactivity [Recovering/Resolving]
  - Anaphylactic reaction [Recovering/Resolving]
